FAERS Safety Report 8882726 (Version 2)
Quarter: 2013Q1

REPORT INFORMATION
  Report Type: Spontaneous
  Country: US (occurrence: US)
  Receive Date: 20121105
  Receipt Date: 20130103
  Transmission Date: 20140127
  Serious: Yes (Hospitalization, Other)
  Sender: FDA-Public Use
  Company Number: US-ELI_LILLY_AND_COMPANY-US201210009222

PATIENT
  Age: 35 Year
  Sex: Male
  Weight: 81.63 kg

DRUGS (3)
  1. ZYPREXA [Suspect]
     Indication: BIPOLAR DISORDER
     Dosage: 2.5 MG, BID
     Route: 048
  2. ZYPREXA [Suspect]
     Dosage: 7.5 MG, BID
     Route: 048
  3. ZOLOFT [Concomitant]
     Indication: BIPOLAR DISORDER
     Dosage: 50 MG, QD

REACTIONS (1)
  - Mania [Recovered/Resolved]
